FAERS Safety Report 12223503 (Version 1)
Quarter: 2016Q1

REPORT INFORMATION
  Report Type: Spontaneous
  Country: US (occurrence: US)
  Receive Date: 20160330
  Receipt Date: 20160330
  Transmission Date: 20160526
  Serious: Yes (Other)
  Sender: FDA-Public Use
  Company Number: US-JNJFOC-20130609917

PATIENT
  Age: 43 Year
  Sex: Male
  Weight: 86.18 kg

DRUGS (10)
  1. EFFEXOR [Concomitant]
     Active Substance: VENLAFAXINE HYDROCHLORIDE
     Indication: DEPRESSION
     Dosage: USED FOR ABOUT 2 MONTHS.
     Route: 065
     Dates: start: 20130401, end: 20130702
  2. EFFEXOR [Suspect]
     Active Substance: VENLAFAXINE HYDROCHLORIDE
     Indication: PRODUCT USED FOR UNKNOWN INDICATION
     Route: 065
  3. EFFEXOR [Suspect]
     Active Substance: VENLAFAXINE HYDROCHLORIDE
     Indication: PRODUCT USED FOR UNKNOWN INDICATION
     Dosage: RECENTLY THE DOSE WAS DOUBLED.
     Route: 065
  4. FINASTERIDE. [Concomitant]
     Active Substance: FINASTERIDE
     Indication: ALOPECIA
     Dosage: INTERVAL: 5 MONTH
     Route: 048
     Dates: start: 201301
  5. MENS ROGAINE EXTRA STRENGTH [Suspect]
     Active Substance: MINOXIDIL
     Indication: ALOPECIA
     Dosage: TWICE DAILY (MORNING AND NIGHT).
     Route: 061
     Dates: start: 20130613
  6. FLUOCINONIDE. [Concomitant]
     Active Substance: FLUOCINONIDE
     Indication: DERMATITIS CONTACT
     Route: 065
  7. CEPHALEXINE [Concomitant]
     Active Substance: CEPHALEXIN
     Indication: PRODUCT USED FOR UNKNOWN INDICATION
     Route: 065
  8. CYMBALTA [Concomitant]
     Active Substance: DULOXETINE HYDROCHLORIDE
     Indication: PRODUCT USED FOR UNKNOWN INDICATION
     Route: 065
  9. MENS ROGAINE EXTRA STRENGTH [Suspect]
     Active Substance: MINOXIDIL
     Indication: ALOPECIA
     Dosage: 4-6 TIMES OVER A MNTH OR TWO. USED LITTLE ABT 4 TIMES BEFORE I HAD THIS EXP. THEN 2 DAYS IN A ROW
     Route: 061
     Dates: start: 20130401
  10. MENS ROGAINE EXTRA STRENGTH [Suspect]
     Active Substance: MINOXIDIL
     Indication: ALOPECIA
     Dosage: ADVISED TO STOP ROGAINE ON 17-JUN-2013.
     Route: 061
     Dates: end: 20130617

REACTIONS (14)
  - Erythema [Unknown]
  - Adjustment disorder [Unknown]
  - Skin depigmentation [Unknown]
  - Cellulitis [Unknown]
  - Wrong technique in product usage process [Unknown]
  - Thermal burn [Recovered/Resolved]
  - Alopecia [Recovered/Resolved]
  - Activities of daily living impaired [Unknown]
  - Treatment noncompliance [Unknown]
  - Rash erythematous [Recovered/Resolved]
  - Folliculitis [Recovered/Resolved]
  - Obsessive thoughts [Unknown]
  - Emotional distress [Unknown]
  - Disturbance in attention [Unknown]

NARRATIVE: CASE EVENT DATE: 20130605
